FAERS Safety Report 26034276 (Version 1)
Quarter: 2025Q4

REPORT INFORMATION
  Report Type: Spontaneous
  Country: US (occurrence: None)
  Receive Date: 20251111
  Receipt Date: 20251111
  Transmission Date: 20260117
  Serious: Yes (Hospitalization)
  Sender: FDA-CTU
  Company Number: None

PATIENT
  Age: 72 Year
  Sex: Female
  Weight: 71.67 kg

DRUGS (1)
  1. JUBBONTI [Suspect]
     Active Substance: DENOSUMAB-BBDZ
     Indication: Osteoporosis
     Route: 058
     Dates: start: 20251106

REACTIONS (5)
  - Immediate post-injection reaction [None]
  - Nausea [None]
  - Headache [None]
  - Conjunctival haemorrhage [None]
  - Blood pressure systolic increased [None]

NARRATIVE: CASE EVENT DATE: 20251106
